FAERS Safety Report 7219940-3 (Version None)
Quarter: 2011Q1

REPORT INFORMATION
  Report Type: 
  Country: None (occurrence: None)
  Receive Date: 20110111
  Receipt Date: 20110105
  Transmission Date: 20110831
  Serious: Yes (Other)
  Sender: FDA-Public Use
  Company Number: US-PURDUE-USA-2011-0061821

PATIENT
  Sex: Female
  Weight: 76.19 kg

DRUGS (2)
  1. OXYCONTIN [Suspect]
     Indication: PRODUCT USED FOR UNKNOWN INDICATION
     Dosage: 80 MG, BID
     Route: 048
     Dates: start: 20100901, end: 20101001
  2. OXYCONTIN [Suspect]
     Dosage: 20 MG, BID
     Route: 048
     Dates: start: 20100901, end: 20101001

REACTIONS (4)
  - VOMITING [None]
  - WEIGHT DECREASED [None]
  - MALAISE [None]
  - DYSPEPSIA [None]
